FAERS Safety Report 19870236 (Version 2)
Quarter: 2021Q3

REPORT INFORMATION
  Report Type: Spontaneous
  Country: US (occurrence: US)
  Receive Date: 20210923
  Receipt Date: 20210929
  Transmission Date: 20211014
  Serious: Yes (Other)
  Sender: FDA-Public Use
  Company Number: US-BEH-2021136246

PATIENT
  Age: 31 Year
  Sex: Female

DRUGS (21)
  1. PRIVIGEN [Suspect]
     Active Substance: HUMAN IMMUNOGLOBULIN G
     Indication: IMMUNODEFICIENCY COMMON VARIABLE
     Dosage: 30 GRAM, QMT
     Route: 042
     Dates: start: 20200723
  2. MARIJUANA [Suspect]
     Active Substance: CANNABIS SATIVA SUBSP. INDICA TOP
     Route: 065
  3. MUPIROCIN. [Concomitant]
     Active Substance: MUPIROCIN
     Route: 065
  4. OXCARBAZEPIN [Concomitant]
     Active Substance: OXCARBAZEPINE
     Route: 065
  5. FOLIC ACID. [Concomitant]
     Active Substance: FOLIC ACID
     Route: 065
  6. NYSTATIN. [Concomitant]
     Active Substance: NYSTATIN
     Route: 065
  7. CYANOCOBALAMIN. [Concomitant]
     Active Substance: CYANOCOBALAMIN
     Route: 065
  8. NORETHINDRONE ACETATE AND ETHINYL ESTRADIOL [Concomitant]
     Active Substance: ETHINYL ESTRADIOL\NORETHINDRONE ACETATE
     Route: 065
  9. KETOCONAZOLE. [Concomitant]
     Active Substance: KETOCONAZOLE
     Route: 065
  10. IBUPROFEN. [Concomitant]
     Active Substance: IBUPROFEN
     Route: 065
  11. MEDROXYPROGESTERONE ACETATE. [Concomitant]
     Active Substance: MEDROXYPROGESTERONE ACETATE
     Route: 065
  12. CEPHALEXIN [CEFALEXIN] [Concomitant]
     Active Substance: CEPHALEXIN
     Route: 065
  13. TOPIRAMATE. [Concomitant]
     Active Substance: TOPIRAMATE
     Route: 065
  14. NIZATIDINE. [Concomitant]
     Active Substance: NIZATIDINE
     Route: 065
  15. DIAZEPAM. [Concomitant]
     Active Substance: DIAZEPAM
     Route: 065
  16. DIPHENHYDRAMINE. [Concomitant]
     Active Substance: DIPHENHYDRAMINE
     Route: 065
  17. ACETAMINOPHEN. [Concomitant]
     Active Substance: ACETAMINOPHEN
     Route: 065
  18. SERTRALINE [Concomitant]
     Active Substance: SERTRALINE HYDROCHLORIDE
     Route: 065
  19. GENTAMICIN. [Concomitant]
     Active Substance: GENTAMICIN
     Route: 065
  20. OLANZAPINE. [Concomitant]
     Active Substance: OLANZAPINE
     Route: 065
  21. VITAMIN D [VITAMIN D NOS] [Concomitant]
     Active Substance: VITAMIN D NOS
     Route: 065

REACTIONS (9)
  - Throat irritation [Unknown]
  - Cough [Unknown]
  - Malaise [Unknown]
  - Altered state of consciousness [Unknown]
  - Throat clearing [Unknown]
  - Throat tightness [Unknown]
  - Disorientation [Unknown]
  - Anxiety [Unknown]
  - Anaphylactic reaction [Unknown]

NARRATIVE: CASE EVENT DATE: 20210918
